FAERS Safety Report 20794259 (Version 4)
Quarter: 2023Q2

REPORT INFORMATION
  Report Type: Spontaneous
  Country: JP (occurrence: JP)
  Receive Date: 20220506
  Receipt Date: 20230404
  Transmission Date: 20230722
  Serious: Yes (Hospitalization, Other)
  Sender: FDA-Public Use
  Company Number: JP-TAKEDA-2022TJP043812

PATIENT
  Age: 68 Year
  Sex: Male

DRUGS (1)
  1. LEUPROLIDE ACETATE [Suspect]
     Active Substance: LEUPROLIDE ACETATE
     Indication: Bulbospinal muscular atrophy congenital
     Dosage: 11.25 MILLIGRAM, Q3MONTHS
     Route: 058
     Dates: start: 20200310

REACTIONS (5)
  - Fall [Recovering/Resolving]
  - Brain contusion [Recovering/Resolving]
  - Traumatic intracranial haemorrhage [Recovering/Resolving]
  - Subarachnoid haemorrhage [Recovering/Resolving]
  - Contusion [Recovering/Resolving]

NARRATIVE: CASE EVENT DATE: 20220406
